FAERS Safety Report 4270002-7 (Version None)
Quarter: 2004Q1

REPORT INFORMATION
  Report Type: 
  Country: None (occurrence: None)
  Receive Date: 20040112
  Receipt Date: 20031231
  Transmission Date: 20041129
  Serious: Yes (Other)
  Sender: FDA-Public Use
  Company Number: US-JNJFOC-20030906085

PATIENT
  Age: 70 Year
  Sex: Male
  Weight: 92.5338 kg

DRUGS (3)
  1. REMICADE (INFLXIIMAB, RECOMBINANT) LYOPHILIZED POWDER [Suspect]
     Indication: RHEUMATOID ARTHRITIS
     Dosage: 3 MG/KG, INTRAVENOUS
     Route: 042
     Dates: start: 20031211
  2. IMURAN [Concomitant]
  3. MOTRIN [Concomitant]

REACTIONS (1)
  - PROSTATE CANCER [None]
